FAERS Safety Report 15813722 (Version 1)
Quarter: 2019Q1

REPORT INFORMATION
  Report Type: Spontaneous
  Country: US (occurrence: US)
  Receive Date: 20190111
  Receipt Date: 20190111
  Transmission Date: 20190417
  Serious: Yes (Hospitalization)
  Sender: FDA-Public Use
  Company Number: US-JNJFOC-20190107733

PATIENT
  Sex: Male

DRUGS (2)
  1. RISPERDAL [Suspect]
     Active Substance: RISPERIDONE
     Indication: AUTISM SPECTRUM DISORDER
     Route: 048
     Dates: end: 2014
  2. ZYPREXA [Suspect]
     Active Substance: OLANZAPINE
     Indication: PRODUCT USED FOR UNKNOWN INDICATION
     Route: 065

REACTIONS (10)
  - Aggression [Unknown]
  - Mood swings [Unknown]
  - Weight decreased [Unknown]
  - Depression [Unknown]
  - Breast mass [Unknown]
  - Dyskinesia [Unknown]
  - Gynaecomastia [Unknown]
  - Myocardial infarction [Unknown]
  - Brain injury [Unknown]
  - Swollen tongue [Unknown]

NARRATIVE: CASE EVENT DATE: 2015
